FAERS Safety Report 10004373 (Version 2)
Quarter: 2014Q2

REPORT INFORMATION
  Report Type: Spontaneous
  Country: US (occurrence: US)
  Receive Date: 20140312
  Receipt Date: 20140418
  Transmission Date: 20141212
  Serious: No
  Sender: FDA-Public Use
  Company Number: US-PFIZER INC-2014071698

PATIENT
  Age: 67 Year
  Sex: Female
  Weight: 63.5 kg

DRUGS (2)
  1. EFFEXOR XR [Suspect]
     Indication: DEPRESSION
     Dosage: 150 MG, DAILY
     Route: 048
  2. EFFEXOR XR [Suspect]
     Dosage: 225 MG (75 MG CAPSULE AND 150 MG CAPSULE), DAILY
     Route: 048

REACTIONS (2)
  - Dizziness [Unknown]
  - Atrial flutter [Unknown]
